FAERS Safety Report 9735840 (Version 2)
Quarter: 2015Q3

REPORT INFORMATION
  Report Type: Spontaneous
  Country: US (occurrence: US)
  Receive Date: 20131206
  Receipt Date: 20150804
  Transmission Date: 20151125
  Serious: Yes (Other)
  Sender: FDA-Public Use
  Company Number: US-GILEAD-2009-0023999

PATIENT
  Age: 79 Year
  Sex: Female
  Weight: 113.4 kg

DRUGS (15)
  1. AMLODIPINE [Concomitant]
     Active Substance: AMLODIPINE BESYLATE
  2. MULTI VIT [Concomitant]
  3. VIT E + C LOT BEAUTY [Concomitant]
  4. BABY ASPIRIN [Concomitant]
     Active Substance: ASPIRIN
  5. PROPOXY/APAP [Concomitant]
  6. LETAIRIS [Suspect]
     Active Substance: AMBRISENTAN
     Indication: PULMONARY ARTERIAL HYPERTENSION
     Route: 048
     Dates: start: 20090810, end: 20090822
  7. ALLOPURINOL. [Concomitant]
     Active Substance: ALLOPURINOL
  8. ALVESCO [Concomitant]
     Active Substance: CICLESONIDE
  9. CALCIUM 600 [Concomitant]
  10. FUROSEMIDE. [Concomitant]
     Active Substance: FUROSEMIDE
  11. WARFARIN [Concomitant]
     Active Substance: WARFARIN
  12. LORAZEPAM. [Concomitant]
     Active Substance: LORAZEPAM
  13. ESTROPIPATE. [Concomitant]
     Active Substance: ESTROPIPATE
  14. GLUCOSAMINE [Concomitant]
     Active Substance: GLUCOSAMINE
  15. ROPINIROLE. [Concomitant]
     Active Substance: ROPINIROLE

REACTIONS (3)
  - Weight increased [Recovering/Resolving]
  - Constipation [Recovering/Resolving]
  - Fluid retention [Recovering/Resolving]

NARRATIVE: CASE EVENT DATE: 20090817
